FAERS Safety Report 8086300-5 (Version None)
Quarter: 2012Q1

REPORT INFORMATION
  Report Type: 
  Country: None (occurrence: None)
  Receive Date: 20120128
  Receipt Date: 20110506
  Transmission Date: 20120608
  Serious: Yes (Other)
  Sender: FDA-Public Use
  Company Number: US-ABBOTT-11P-163-0722561-00

PATIENT
  Sex: Male
  Weight: 90.8 kg

DRUGS (4)
  1. METHOTREXATE [Concomitant]
     Indication: PRODUCT USED FOR UNKNOWN INDICATION
  2. HUMIRA [Suspect]
     Indication: RHEUMATOID ARTHRITIS
     Dates: start: 20110118
  3. CELEBREX [Concomitant]
     Indication: ARTHRITIS
  4. LEFLUNOMIDE [Concomitant]
     Indication: ARTHRALGIA

REACTIONS (3)
  - POST PROCEDURAL DISCHARGE [None]
  - DYSPNOEA [None]
  - PROCEDURAL HAEMORRHAGE [None]
